FAERS Safety Report 10151582 (Version 1)
Quarter: 2014Q2

REPORT INFORMATION
  Report Type: Spontaneous
  Country: US (occurrence: US)
  Receive Date: 20140505
  Receipt Date: 20140505
  Transmission Date: 20141212
  Serious: Yes (Other)
  Sender: FDA-Public Use
  Company Number: US-009507513-1404USA015311

PATIENT
  Age: 39 Year
  Sex: Female

DRUGS (4)
  1. ISENTRESS [Suspect]
     Dosage: UNK
     Route: 048
     Dates: end: 20140404
  2. ZIAGEN [Suspect]
     Dosage: 600 MG, DAILY
     Route: 048
  3. EPIVIR [Suspect]
     Dosage: 300 MG DAY
     Route: 048
  4. KALETRA [Concomitant]
     Dosage: 4 TAB/CAPS (DF)
     Route: 048
     Dates: start: 20140404

REACTIONS (1)
  - Abortion spontaneous [Unknown]
